FAERS Safety Report 8984383 (Version 3)
Quarter: 2013Q1

REPORT INFORMATION
  Report Type: Spontaneous
  Country: GB (occurrence: None)
  Receive Date: 20121217
  Receipt Date: 20130319
  Transmission Date: 20140127
  Serious: Yes (Other)
  Sender: FDA-Public Use
  Company Number: AUR-APL-2012-05255

PATIENT
  Age: 48 Year
  Sex: Female

DRUGS (3)
  1. RIBAVIRIN [Suspect]
     Indication: HEPATITIS C
     Dosage: (2 IN 1 D), ORAL?09/05/2012 - ONGOING
     Route: 048
     Dates: start: 20120905
  2. PEGINTERFERON ALFA 2A [Suspect]
     Indication: HEPATITIS C
     Dosage: (1 IN 1 WK), SUBCUTANEOUS?09/05/2012 - ONGOING
     Route: 058
     Dates: start: 20120905
  3. TELAPREVIR [Suspect]
     Indication: HEPATITIS C
     Dosage: 2250 MG (750 MG, 3 IN 1 D), ORAL
     Route: 048
     Dates: start: 20120905, end: 20121107

REACTIONS (12)
  - Fatigue [None]
  - Influenza like illness [None]
  - Haemorrhoids [None]
  - Decreased appetite [None]
  - Oral candidiasis [None]
  - Anaemia [None]
  - Lethargy [None]
  - Rash [None]
  - Swollen tongue [None]
  - Alopecia [None]
  - Nausea [None]
  - Oedema mouth [None]
